FAERS Safety Report 23544726 (Version 5)
Quarter: 2024Q2

REPORT INFORMATION
  Report Type: Report from Study
  Country: CA (occurrence: CA)
  Receive Date: 20240220
  Receipt Date: 20240415
  Transmission Date: 20240716
  Serious: Yes (Other)
  Sender: FDA-Public Use
  Company Number: CA-JNJFOC-20240246764

PATIENT
  Age: 54 Year
  Sex: Female

DRUGS (3)
  1. SIMPONI [Suspect]
     Active Substance: GOLIMUMAB
     Indication: Rheumatoid arthritis
     Route: 058
     Dates: start: 20240206
  2. SIMPONI [Suspect]
     Active Substance: GOLIMUMAB
     Route: 058
  3. SIMPONI [Suspect]
     Active Substance: GOLIMUMAB
     Route: 058
     Dates: start: 20240206

REACTIONS (2)
  - Pneumonia [Recovering/Resolving]
  - Throat irritation [Not Recovered/Not Resolved]

NARRATIVE: CASE EVENT DATE: 20240212
